FAERS Safety Report 15601269 (Version 2)
Quarter: 2019Q1

REPORT INFORMATION
  Report Type: Spontaneous
  Country: JP (occurrence: JP)
  Receive Date: 20181109
  Receipt Date: 20190129
  Transmission Date: 20190417
  Serious: No
  Sender: FDA-Public Use
  Company Number: JP-ELI_LILLY_AND_COMPANY-JP201809010491

PATIENT
  Age: 51 Year
  Sex: Male

DRUGS (5)
  1. LEVOFOLINATE CALCIUM [Suspect]
     Active Substance: LEVOLEUCOVORIN CALCIUM
     Indication: COLON CANCER
     Dosage: 180 MG, OTHER
     Route: 065
     Dates: start: 20180806
  2. FLUOROURACIL. [Suspect]
     Active Substance: FLUOROURACIL
     Indication: COLON CANCER
     Dosage: 500 MG, OTHER
     Route: 040
     Dates: start: 20180806
  3. IRINOTECAN [Suspect]
     Active Substance: IRINOTECAN
     Indication: COLON CANCER
     Dosage: UNK
     Route: 065
     Dates: start: 20180806
  4. FLUOROURACIL. [Suspect]
     Active Substance: FLUOROURACIL
     Dosage: 1000 MG, OTHER
     Route: 041
     Dates: start: 20180806
  5. CYRAMZA [Suspect]
     Active Substance: RAMUCIRUMAB
     Indication: COLON CANCER
     Dosage: 500 MG, OTHER
     Route: 041
     Dates: start: 20180806, end: 20181001

REACTIONS (1)
  - Dermatitis acneiform [Unknown]
